FAERS Safety Report 25842413 (Version 1)
Quarter: 2025Q3

REPORT INFORMATION
  Report Type: Spontaneous
  Country: JP (occurrence: JP)
  Receive Date: 20250924
  Receipt Date: 20250924
  Transmission Date: 20251020
  Serious: Yes (Other)
  Sender: AMGEN
  Company Number: JP-AMGEN-JPNSP2025186294

PATIENT
  Age: 70 Year
  Sex: Male
  Weight: 51.4 kg

DRUGS (7)
  1. BEVACIZUMAB [Suspect]
     Active Substance: BEVACIZUMAB
     Indication: Colorectal cancer stage IV
     Route: 065
  2. BINIMETINIB [Suspect]
     Active Substance: BINIMETINIB
     Indication: Colorectal cancer stage IV
     Dosage: 90 MILLIGRAM, QD
     Route: 065
  3. BINIMETINIB [Suspect]
     Active Substance: BINIMETINIB
     Dosage: 60 MILLIGRAM, QD
     Route: 065
  4. FLUOROURACIL\LEUCOVORIN CALCIUM\OXALIPLATIN [Concomitant]
     Active Substance: FLUOROURACIL\LEUCOVORIN CALCIUM\OXALIPLATIN
  5. TS-1 [Concomitant]
     Active Substance: GIMERACIL\OTERACIL POTASSIUM\TEGAFUR
  6. IRINOTECAN [Concomitant]
     Active Substance: IRINOTECAN
     Dosage: UNK UNK, QWK
  7. AZILSARTAN KAMEDOXOMIL [Concomitant]
     Active Substance: AZILSARTAN KAMEDOXOMIL

REACTIONS (7)
  - Metastases to liver [Unknown]
  - Colorectal cancer stage IV [Unknown]
  - Electrocardiogram QT prolonged [Unknown]
  - Renal impairment [Recovered/Resolved]
  - Hypokalaemia [Unknown]
  - Cardiac dysfunction [Recovered/Resolved]
  - Hypomagnesaemia [Recovered/Resolved]
